FAERS Safety Report 4821734-0 (Version None)
Quarter: 2005Q4

REPORT INFORMATION
  Report Type: 
  Country: None (occurrence: None)
  Receive Date: 20051103
  Receipt Date: 20051019
  Transmission Date: 20060501
  Serious: Yes (Hospitalization)
  Sender: FDA-Public Use
  Company Number: USA0508106907

PATIENT
  Age: 51 Year
  Sex: Male
  Weight: 65 kg

DRUGS (3)
  1. CYMBALTA [Suspect]
     Indication: PAIN
     Dosage: 20 MG EVERY OTHER DAY
     Dates: start: 20050411, end: 20050808
  2. TESTOSTERONE [Concomitant]
  3. TESTOSTERONE [Concomitant]

REACTIONS (2)
  - MANIA [None]
  - SEXUAL ACTIVITY INCREASED [None]
